FAERS Safety Report 18808896 (Version 1)
Quarter: 2021Q1

REPORT INFORMATION
  Report Type: Report from Study
  Country: DK (occurrence: DK)
  Receive Date: 20210129
  Receipt Date: 20210129
  Transmission Date: 20210419
  Serious: Yes (Hospitalization)
  Sender: FDA-Public Use
  Company Number: DK-ROCHE-2758075

PATIENT
  Sex: Male

DRUGS (4)
  1. MEROPENEM. [Concomitant]
     Active Substance: MEROPENEM
  2. SOLU?CORTEF [Concomitant]
     Active Substance: HYDROCORTISONE SODIUM SUCCINATE
  3. VEMURAFENIB. [Suspect]
     Active Substance: VEMURAFENIB
     Indication: BRAF GENE MUTATION
     Route: 048
     Dates: start: 20201214, end: 20210112
  4. COBIMETINIB. [Suspect]
     Active Substance: COBIMETINIB
     Indication: BRAF GENE MUTATION
     Route: 048
     Dates: start: 20201214, end: 20210112

REACTIONS (1)
  - Infection [Not Recovered/Not Resolved]

NARRATIVE: CASE EVENT DATE: 20210112
